FAERS Safety Report 19808430 (Version 1)
Quarter: 2021Q3

REPORT INFORMATION
  Report Type: Spontaneous
  Country: DE (occurrence: DE)
  Receive Date: 20210909
  Receipt Date: 20210909
  Transmission Date: 20211014
  Serious: Yes (Hospitalization, Other)
  Sender: FDA-Public Use
  Company Number: DE-AUROBINDO-AUR-APL-2021-038321

PATIENT
  Age: 58 Year
  Sex: Female
  Weight: 127 kg

DRUGS (8)
  1. SACUBITRIL;VALSARTAN [Suspect]
     Active Substance: SACUBITRIL\VALSARTAN
     Indication: PRODUCT USED FOR UNKNOWN INDICATION
     Dosage: UNK (24|26 MG, 1?0?0?0)
     Route: 048
  2. SPIRONOLACTON [Suspect]
     Active Substance: SPIRONOLACTONE
     Indication: PRODUCT USED FOR UNKNOWN INDICATION
     Dosage: 50 MILLIGRAM (0.5?0?0?0)
     Route: 048
  3. IBEROGAST [Concomitant]
     Active Substance: HERBALS
     Indication: PRODUCT USED FOR UNKNOWN INDICATION
     Dosage: UNK (NEED, DROPS)
     Route: 048
  4. METOPROLOL. [Concomitant]
     Active Substance: METOPROLOL
     Indication: PRODUCT USED FOR UNKNOWN INDICATION
     Dosage: 47.5 MILLIGRAM (1?0?1?0, DELAY TABLETS)
     Route: 048
  5. CETIRIZIN [Concomitant]
     Active Substance: CETIRIZINE HYDROCHLORIDE
     Indication: PRODUCT USED FOR UNKNOWN INDICATION
     Dosage: 10 MILLIGRAM (AS NEEDED)
     Route: 048
  6. IBUPROFEN FILM?COATED TABLETS [Suspect]
     Active Substance: IBUPROFEN
     Indication: PRODUCT USED FOR UNKNOWN INDICATION
     Dosage: 400 MILLIGRAM (AS NEEDED)
     Route: 048
  7. METFORMIN FILM?COATED TABLET [Suspect]
     Active Substance: METFORMIN HYDROCHLORIDE
     Indication: PRODUCT USED FOR UNKNOWN INDICATION
     Dosage: 850 MILLIGRAM (1?0?1?0)
     Route: 048
  8. FUROSEMID [Suspect]
     Active Substance: FUROSEMIDE
     Indication: PRODUCT USED FOR UNKNOWN INDICATION
     Dosage: 40 MILLIGRAM (1?1?0?0)
     Route: 048

REACTIONS (12)
  - Anaemia [Unknown]
  - Dyspnoea [Unknown]
  - General physical health deterioration [Unknown]
  - Urinary incontinence [Unknown]
  - Headache [Unknown]
  - Abdominal pain lower [Unknown]
  - Insomnia [Unknown]
  - Haematochezia [Unknown]
  - Acute kidney injury [Unknown]
  - Fatigue [Unknown]
  - Abdominal pain [Unknown]
  - Cough [Unknown]
